FAERS Safety Report 25635273 (Version 1)
Quarter: 2025Q3

REPORT INFORMATION
  Report Type: Spontaneous
  Country: CN (occurrence: CN)
  Receive Date: 20250802
  Receipt Date: 20250802
  Transmission Date: 20251021
  Serious: Yes (Other)
  Sender: ESKAYEF PHARMACEUTICALS LIMITED
  Company Number: CN-SKF-000168

PATIENT
  Age: 79 Year
  Sex: Female

DRUGS (9)
  1. FILGRASTIM [Concomitant]
     Active Substance: FILGRASTIM
     Indication: Neutropenia
     Route: 058
     Dates: start: 20250220
  2. AMLODIPINE [Concomitant]
     Active Substance: AMLODIPINE BESYLATE
     Indication: Hypertension
     Route: 065
     Dates: start: 20250220
  3. METHYLCOBALAMIN [Concomitant]
     Active Substance: METHYLCOBALAMIN
     Indication: Neuropathy peripheral
     Route: 065
     Dates: start: 20250220
  4. PENCICLOVIR [Suspect]
     Active Substance: PENCICLOVIR
     Indication: Herpes zoster
     Route: 042
     Dates: start: 20250220
  5. PENCICLOVIR [Suspect]
     Active Substance: PENCICLOVIR
     Indication: Herpes zoster cutaneous disseminated
     Route: 061
     Dates: start: 20250220
  6. FUSIDIC ACID [Concomitant]
     Active Substance: FUSIDIC ACID
     Indication: Herpes zoster cutaneous disseminated
     Route: 061
     Dates: start: 20250220
  7. THYMALFASIN [Concomitant]
     Active Substance: THYMALFASIN
     Indication: Neutropenia
     Route: 058
     Dates: start: 20250220
  8. LEUCOGEN [Concomitant]
     Active Substance: LEUCOGEN
     Indication: Neutropenia
     Route: 048
     Dates: start: 20250220
  9. PREGABALIN [Suspect]
     Active Substance: PREGABALIN
     Indication: Analgesic therapy
     Route: 048
     Dates: start: 20250220

REACTIONS (4)
  - Dermatitis bullous [Recovered/Resolved]
  - Condition aggravated [Recovered/Resolved]
  - Drug ineffective [Recovered/Resolved]
  - Inadequate analgesia [Recovered/Resolved]

NARRATIVE: CASE EVENT DATE: 20250226
